FAERS Safety Report 21058494 (Version 1)
Quarter: 2022Q3

REPORT INFORMATION
  Report Type: Spontaneous
  Country: FR (occurrence: None)
  Receive Date: 20220708
  Receipt Date: 20220708
  Transmission Date: 20221027
  Serious: Yes (Other)
  Sender: FDA-Public Use
  Company Number: FR-Merck Healthcare KGaA-9334023

PATIENT
  Sex: Female
  Weight: 59 kg

DRUGS (15)
  1. LEVOTHYROXINE [Suspect]
     Active Substance: LEVOTHYROXINE
     Indication: Product used for unknown indication
  2. SACITUZUMAB GOVITECAN [Suspect]
     Active Substance: SACITUZUMAB GOVITECAN
     Indication: Triple negative breast cancer
     Dosage: C1D1 AND D8
     Route: 042
     Dates: start: 20211203, end: 20211210
  3. SACITUZUMAB GOVITECAN [Suspect]
     Active Substance: SACITUZUMAB GOVITECAN
     Dosage: C2D1
     Route: 042
     Dates: start: 20211224
  4. SACITUZUMAB GOVITECAN [Suspect]
     Active Substance: SACITUZUMAB GOVITECAN
     Dosage: C3D1 AND D8
     Route: 042
     Dates: start: 20220211, end: 20220218
  5. SACITUZUMAB GOVITECAN [Suspect]
     Active Substance: SACITUZUMAB GOVITECAN
     Dosage: C4D1 AND D8
     Route: 042
     Dates: start: 20220304, end: 20220311
  6. SACITUZUMAB GOVITECAN [Suspect]
     Active Substance: SACITUZUMAB GOVITECAN
     Dosage: C5D1 AND C5D8
     Route: 042
     Dates: start: 20220325, end: 20220401
  7. SACITUZUMAB GOVITECAN [Suspect]
     Active Substance: SACITUZUMAB GOVITECAN
     Dosage: C6D1 AND C6D8
     Route: 042
     Dates: start: 20220415, end: 20220422
  8. SACITUZUMAB GOVITECAN [Suspect]
     Active Substance: SACITUZUMAB GOVITECAN
     Dosage: C7D1 AND C7D8
     Route: 042
     Dates: start: 20220506
  9. SACITUZUMAB GOVITECAN [Suspect]
     Active Substance: SACITUZUMAB GOVITECAN
     Dosage: C8D1 AND C8D8
     Route: 042
     Dates: start: 20220530, end: 20220606
  10. LOXAPINE HYDROCHLORIDE [Concomitant]
     Active Substance: LOXAPINE HYDROCHLORIDE
     Indication: Product used for unknown indication
     Dates: start: 20161001
  11. LITHIUM [Concomitant]
     Active Substance: LITHIUM
     Indication: Product used for unknown indication
     Dates: start: 20161001
  12. LORAZEPAM [Concomitant]
     Active Substance: LORAZEPAM
     Indication: Product used for unknown indication
     Dates: start: 20161001
  13. TRIMEPRAZINE [Concomitant]
     Active Substance: TRIMEPRAZINE
     Indication: Product used for unknown indication
     Dates: start: 20161001
  14. ABILIFY [Concomitant]
     Active Substance: ARIPIPRAZOLE
     Indication: Product used for unknown indication
     Dates: start: 20161001
  15. PAROXETINE [Concomitant]
     Active Substance: PAROXETINE
     Indication: Product used for unknown indication
     Dates: start: 20161001

REACTIONS (2)
  - Hypothyroidism [Not Recovered/Not Resolved]
  - Off label use [Recovered/Resolved]

NARRATIVE: CASE EVENT DATE: 20220407
